FAERS Safety Report 9160485 (Version 1)
Quarter: 2013Q1

REPORT INFORMATION
  Report Type: Spontaneous
  Country: US (occurrence: None)
  Receive Date: 20130219
  Receipt Date: 20130219
  Transmission Date: 20140127
  Serious: Yes (Hospitalization)
  Sender: FDA-Public Use
  Company Number: VAL_01403_2013

PATIENT
  Age: 32 Year
  Sex: Male
  Weight: 65.7 kg

DRUGS (5)
  1. LOPRESSOR (NOT SPECIFIED) [Suspect]
     Indication: HYPERTENSION
     Dates: start: 20110207
  2. MYFORTIC (NOT SPECIFIED) [Suspect]
     Indication: IMMUNOSUPPRESSION
     Dates: start: 20110204, end: 20110417
  3. TACROLIMUS [Suspect]
     Indication: IMMUNOSUPPRESSION
     Dates: start: 20110202
  4. VALCYTE (NOT SPECIFIED) [Suspect]
     Indication: INFECTION PROPHYLAXIS
     Dosage: (DF [REGIMEN #1])
     Dates: start: 20110206, end: 20110417
  5. MYCELEX (NOT SPECIFIED) [Suspect]
     Indication: INFECTION PROPHYLAXIS
     Dosage: (DF [REGIMEN #1])
     Dates: start: 20110207

REACTIONS (2)
  - Febrile neutropenia [None]
  - Blood creatinine increased [None]
